FAERS Safety Report 8348887-4 (Version None)
Quarter: 2012Q2

REPORT INFORMATION
  Report Type: 
  Country: None (occurrence: None)
  Receive Date: 20120508
  Receipt Date: 20120427
  Transmission Date: 20120825
  Serious: Yes (Death)
  Sender: FDA-Public Use
  Company Number: ENT 2012-0074

PATIENT
  Age: 68 Year
  Sex: Male

DRUGS (2)
  1. PROOPA [Concomitant]
  2. COMTAN [Suspect]
     Indication: PARKINSON'S DISEASE

REACTIONS (1)
  - DYSPHAGIA [None]
